FAERS Safety Report 8084700-0 (Version None)
Quarter: 2012Q1

REPORT INFORMATION
  Report Type: 
  Country: None (occurrence: None)
  Receive Date: 20120130
  Receipt Date: 20120112
  Transmission Date: 20120608
  Serious: Yes (Other)
  Sender: FDA-Public Use
  Company Number: PHHY2012BR002952

PATIENT
  Age: 66 Year
  Sex: Female

DRUGS (1)
  1. RASILEZ [Suspect]
     Indication: HYPERTENSION
     Dosage: 300 MG,DAILY
     Dates: end: 20120111

REACTIONS (2)
  - DYSENTERY [None]
  - BLOOD PRESSURE INADEQUATELY CONTROLLED [None]
